FAERS Safety Report 4389992-7 (Version None)
Quarter: 2004Q2

REPORT INFORMATION
  Report Type: 
  Country: None (occurrence: None)
  Receive Date: 20040630
  Receipt Date: 20040616
  Transmission Date: 20050107
  Serious: Yes (Life-Threatening, Hospitalization)
  Sender: FDA-Public Use
  Company Number: 2004040657

PATIENT
  Age: 80 Year
  Sex: Female

DRUGS (2)
  1. OXYTETRACYCLINE HCL [Suspect]
     Indication: ROSACEA
     Dosage: 250 MG (250 MG, 1 IN 1 D), ORAL
     Route: 048
     Dates: start: 20040423, end: 20040510
  2. PHENYTOIN SODIUM [Suspect]
     Indication: EPILEPSY
     Dosage: 275 MG (275 MG, 1 IN 1 D),

REACTIONS (2)
  - DRUG INTERACTION [None]
  - DRUG TOXICITY [None]
